FAERS Safety Report 8554514-3 (Version None)
Quarter: 2012Q3

REPORT INFORMATION
  Report Type: 
  Country: None (occurrence: None)
  Receive Date: 20120731
  Receipt Date: 20120727
  Transmission Date: 20120928
  Serious: Yes (Hospitalization)
  Sender: FDA-Public Use
  Company Number: US-UCBSA-062664

PATIENT
  Age: 23 Year
  Sex: Female
  Weight: 59.9 kg

DRUGS (5)
  1. AZATHIOPRINE [Concomitant]
     Dates: start: 20110301
  2. ZOFRAN [Concomitant]
  3. ACETAMINOPHEN [Concomitant]
  4. PREDNISONE [Concomitant]
     Dates: start: 20120101, end: 20120601
  5. CIMZIA [Suspect]
     Indication: CROHN'S DISEASE
     Route: 058
     Dates: start: 20120323

REACTIONS (1)
  - CLOSTRIDIAL INFECTION [None]
